FAERS Safety Report 24063312 (Version 2)
Quarter: 2024Q3

REPORT INFORMATION
  Report Type: Report from Study
  Country: US (occurrence: US)
  Receive Date: 20240709
  Receipt Date: 20240728
  Transmission Date: 20241017
  Serious: Yes (Hospitalization, Other)
  Sender: ABBVIE
  Company Number: US-ABBVIE-5831606

PATIENT
  Age: 60 Year
  Sex: Female

DRUGS (2)
  1. DUOPA [Suspect]
     Active Substance: CARBIDOPA\LEVODOPA
     Indication: Parkinson^s disease
     Dosage: DUOPA (100ML X 7) 4.63-20MG/ MORNING DOSE: 7ML, CONTINUOUS DOSE: 2.5ML/HR,  EXTRA DOSE: 1.3ML?FRE...
     Route: 050
     Dates: start: 202108
  2. DUOPA [Suspect]
     Active Substance: CARBIDOPA\LEVODOPA
     Dosage: DUOPA (100ML X 7) 4.63-20MG/ MORNING DOSE: 7ML, CONTINUOUS DOSE: 2.5ML/HR,  EXTRA DOSE: 1.3ML EVE...
     Route: 050
     Dates: start: 202108

REACTIONS (5)
  - Hip fracture [Unknown]
  - Bradykinesia [Unknown]
  - Musculoskeletal stiffness [Unknown]
  - Mobility decreased [Unknown]
  - Fall [Unknown]

NARRATIVE: CASE EVENT DATE: 20240616
